FAERS Safety Report 8093519-6 (Version None)
Quarter: 2012Q1

REPORT INFORMATION
  Report Type: 
  Country: None (occurrence: None)
  Receive Date: 20120129
  Receipt Date: 20111017
  Transmission Date: 20120608
  Serious: No
  Sender: FDA-Public Use
  Company Number: US-ABBOTT-11P-163-0865634-00

PATIENT
  Age: 54 Year
  Sex: Male

DRUGS (8)
  1. CLOPIDOGREL BISULFATE [Concomitant]
     Indication: CARDIAC DISORDER
     Dosage: PER DAY
  2. HUMIRA [Suspect]
     Indication: PSORIASIS
     Dates: start: 20080601
  3. SERTRALINE HYDROCHLORIDE [Concomitant]
     Indication: DEPRESSION
     Dosage: PER DAY
  4. ALLOPURINOL [Concomitant]
     Indication: PRODUCT USED FOR UNKNOWN INDICATION
     Dosage: PER DAY
  5. ASPIRIN [Concomitant]
     Indication: CARDIAC DISORDER
     Dosage: PER DAY
  6. ATORVASTATIN CALCIUM [Concomitant]
     Indication: BLOOD CHOLESTEROL INCREASED
     Dosage: PER DAY
  7. FENOFIBRATE [Concomitant]
     Indication: BLOOD CHOLESTEROL INCREASED
     Dosage: PER DAY
  8. STEROID [Concomitant]
     Indication: PSORIASIS
     Dosage: RARELY USED

REACTIONS (4)
  - BLOOD PRESSURE DECREASED [None]
  - NASOPHARYNGITIS [None]
  - IMPAIRED HEALING [None]
  - PHARYNGEAL OEDEMA [None]
